FAERS Safety Report 23919177 (Version 2)
Quarter: 2024Q3

REPORT INFORMATION
  Report Type: Spontaneous
  Country: DE (occurrence: DE)
  Receive Date: 20240530
  Receipt Date: 20240701
  Transmission Date: 20241016
  Serious: Yes (Hospitalization, Other)
  Sender: UCB
  Company Number: None

PATIENT
  Age: 63 Year
  Sex: Male
  Weight: 76 kg

DRUGS (13)
  1. NEUPRO [Interacting]
     Active Substance: ROTIGOTINE
     Indication: Parkinson^s disease
     Dosage: 4 MILLIGRAM, ONCE DAILY (QD) (4?MG ALONGSIDE 8?MG)
     Route: 062
     Dates: start: 2022
  2. NEUPRO [Interacting]
     Active Substance: ROTIGOTINE
     Dosage: 16 MILLIGRAM, ONCE DAILY (QD) (2X8MG))
     Route: 062
     Dates: start: 20231110, end: 20231115
  3. NEUPRO [Interacting]
     Active Substance: ROTIGOTINE
     Dosage: 8 MILLIGRAM, ONCE DAILY (QD) (4?MG ALONGSIDE 8?MG)
     Route: 062
     Dates: start: 202403
  4. NEUPRO [Interacting]
     Active Substance: ROTIGOTINE
     Dosage: 6 MILLIGRAM, UNK
     Route: 062
     Dates: start: 202403
  5. LEVODOPA [Interacting]
     Active Substance: LEVODOPA
     Indication: Product used for unknown indication
     Dosage: UNK
  6. CLARITHROMYCIN [Concomitant]
     Active Substance: CLARITHROMYCIN
     Indication: Product used for unknown indication
     Dosage: UNK
  7. AMANTADINE [Concomitant]
     Active Substance: AMANTADINE
     Indication: Product used for unknown indication
     Dosage: 100 MILLIGRAM 1/1/0
  8. BENSERAZIDE HYDROCHLORIDE\LEVODOPA [Concomitant]
     Active Substance: BENSERAZIDE HYDROCHLORIDE\LEVODOPA
     Indication: Product used for unknown indication
     Dosage: 1/0.5/0.5, 1.5/1.5/1.5
     Dates: start: 2022
  9. BENSERAZIDE HYDROCHLORIDE\LEVODOPA [Concomitant]
     Active Substance: BENSERAZIDE HYDROCHLORIDE\LEVODOPA
     Dosage: 700 MILLIGRAM
     Dates: start: 2022, end: 20231115
  10. BENSERAZIDE HYDROCHLORIDE\LEVODOPA [Concomitant]
     Active Substance: BENSERAZIDE HYDROCHLORIDE\LEVODOPA
     Dosage: 1.5-1-1.5-1
     Dates: start: 20231204
  11. SAFINAMIDE [Concomitant]
     Active Substance: SAFINAMIDE
     Indication: Product used for unknown indication
     Dosage: 50 MILLIGRAM, ONCE DAILY (QD)
     Dates: start: 2022
  12. XADAGO [Concomitant]
     Active Substance: SAFINAMIDE MESYLATE
     Indication: Product used for unknown indication
     Dosage: 100 MILLIGRAM, ONCE DAILY (QD)
  13. ONGENTYS [Concomitant]
     Active Substance: OPICAPONE
     Indication: Product used for unknown indication
     Dosage: 50 MILLIGRAM, ONCE DAILY (QD)

REACTIONS (5)
  - General physical health deterioration [Recovered/Resolved]
  - Parkinson^s disease [Unknown]
  - Restless legs syndrome [Unknown]
  - Drug interaction [Recovered/Resolved]
  - Therapeutic product effect variable [Unknown]

NARRATIVE: CASE EVENT DATE: 20240101
